FAERS Safety Report 24627870 (Version 2)
Quarter: 2024Q4

REPORT INFORMATION
  Report Type: Spontaneous
  Country: US (occurrence: US)
  Receive Date: 20241117
  Receipt Date: 20241118
  Transmission Date: 20250114
  Serious: No
  Sender: ALEXION PHARMACEUTICALS
  Company Number: US-AstraZeneca-CH-00722242A

PATIENT

DRUGS (4)
  1. BRILINTA [Suspect]
     Active Substance: TICAGRELOR
  2. BRILINTA [Suspect]
     Active Substance: TICAGRELOR
  3. BRILINTA [Suspect]
     Active Substance: TICAGRELOR
  4. BRILINTA [Suspect]
     Active Substance: TICAGRELOR

REACTIONS (3)
  - Product use issue [Unknown]
  - Depressed mood [Unknown]
  - Inability to afford medication [Unknown]
